FAERS Safety Report 20126862 (Version 1)
Quarter: 2021Q4

REPORT INFORMATION
  Report Type: Report from Study
  Country: AU (occurrence: AU)
  Receive Date: 20211129
  Receipt Date: 20211129
  Transmission Date: 20220304
  Serious: Yes (Hospitalization)
  Sender: FDA-Public Use
  Company Number: AU-Merck Healthcare KGaA-9280357

PATIENT
  Age: 62 Year
  Sex: Male
  Weight: 62 kg

DRUGS (9)
  1. CARBOPLATIN [Suspect]
     Active Substance: CARBOPLATIN
     Indication: Oesophageal carcinoma
     Dosage: 85 MG
     Route: 042
     Dates: start: 20211018
  2. CARBOPLATIN [Suspect]
     Active Substance: CARBOPLATIN
     Dosage: 85 MG
     Route: 042
     Dates: start: 20211101, end: 20211101
  3. CARBOPLATIN [Suspect]
     Active Substance: CARBOPLATIN
     Dosage: 85 MG
     Route: 042
     Dates: start: 20211115
  4. PACLITAXEL [Suspect]
     Active Substance: PACLITAXEL
     Indication: Oesophageal carcinoma
     Dosage: 85 MG
     Route: 042
     Dates: start: 20211018
  5. PACLITAXEL [Suspect]
     Active Substance: PACLITAXEL
     Dosage: 85 MG
     Route: 042
     Dates: start: 20211101, end: 20211101
  6. PACLITAXEL [Suspect]
     Active Substance: PACLITAXEL
     Dosage: 85 MG
     Route: 042
     Dates: start: 20211115
  7. AVELUMAB [Suspect]
     Active Substance: AVELUMAB
     Indication: Oesophageal carcinoma
     Dosage: 628 MG
     Route: 042
     Dates: start: 20211018
  8. AVELUMAB [Suspect]
     Active Substance: AVELUMAB
     Dosage: 628 MG
     Route: 042
     Dates: start: 20211101
  9. NALOXONE HYDROCHLORIDE\OXYCODONE HYDROCHLORIDE [Concomitant]
     Active Substance: NALOXONE HYDROCHLORIDE\OXYCODONE HYDROCHLORIDE
     Indication: Cancer pain
     Dosage: TARGIN 10/5
     Route: 048
     Dates: start: 20211004

REACTIONS (1)
  - Gastroenteritis salmonella [Recovered/Resolved]

NARRATIVE: CASE EVENT DATE: 20211101
